FAERS Safety Report 5771864-4 (Version None)
Quarter: 2008Q2

REPORT INFORMATION
  Report Type: 
  Country: None (occurrence: None)
  Receive Date: 20080613
  Receipt Date: 20080609
  Transmission Date: 20081010
  Serious: Yes (Hospitalization)
  Sender: FDA-Public Use
  Company Number: B0519631A

PATIENT
  Age: 29 Year
  Sex: Female

DRUGS (9)
  1. VALTREX [Suspect]
     Indication: HERPES SIMPLEX
     Dosage: 500MG TWICE PER DAY
     Route: 048
     Dates: start: 20080306
  2. VALTREX [Suspect]
     Route: 048
     Dates: start: 20080408
  3. ZOVIRAX [Suspect]
     Indication: HERPES SIMPLEX
     Dosage: 250MG TWICE PER DAY
     Route: 042
     Dates: start: 20080311, end: 20080316
  4. CALONAL [Concomitant]
     Route: 065
     Dates: start: 20080304
  5. ASVERIN [Concomitant]
     Route: 048
     Dates: start: 20080304
  6. PERIACTIN [Concomitant]
     Route: 048
     Dates: start: 20080304
  7. TRANSAMIN [Concomitant]
     Route: 065
     Dates: start: 20080304
  8. MUCODYNE [Concomitant]
     Route: 048
     Dates: start: 20080304
  9. SAXIZON [Concomitant]
     Dates: start: 20080304

REACTIONS (4)
  - ANAPHYLACTOID REACTION [None]
  - HEADACHE [None]
  - NAUSEA [None]
  - OEDEMA [None]
